FAERS Safety Report 19221017 (Version 1)
Quarter: 2021Q2

REPORT INFORMATION
  Report Type: Spontaneous
  Country: GB (occurrence: GB)
  Receive Date: 20210505
  Receipt Date: 20210505
  Transmission Date: 20210717
  Serious: Yes (Other)
  Sender: FDA-Public Use
  Company Number: GB-MYLANLABS-2021M1026058

PATIENT
  Age: 70 Year
  Sex: Male

DRUGS (11)
  1. CETIRIZINE [Concomitant]
     Active Substance: CETIRIZINE HYDROCHLORIDE
     Dosage: 10 MILLIGRAM, QD (ONE TO BE TAKEN EACH DAY IN THE AFTRENOON)
  2. CO?DYDRAMOL [Concomitant]
     Active Substance: ACETAMINOPHEN\DIHYDROCODEINE
     Dosage: 2 TABS THREE TIMES A DAY
  3. OLANZAPINE. [Concomitant]
     Active Substance: OLANZAPINE
     Dosage: 15 MILLIGRAM, PM (ONE TO BE TAKEN AT NIGHT)
  4. ATORVASTATIN [Suspect]
     Active Substance: ATORVASTATIN
     Indication: PRODUCT USED FOR UNKNOWN INDICATION
     Dosage: 10 MILLIGRAM, QD (ONE TO BE TAKEN EACH DAY)
  5. QUININE [Concomitant]
     Active Substance: QUININE
     Dosage: 300 MILLIGRAM, QD (TO BE TAKEN AT 2PM ? ONCE A DAY 28 TABLET)
  6. FUROSEMIDE. [Concomitant]
     Active Substance: FUROSEMIDE
     Dosage: 20 MILLIGRAM, AM (ONE TO BE TAKEN EACH MORNING)
  7. RILUZOLE. [Concomitant]
     Active Substance: RILUZOLE
     Dosage: 50 MILLIGRAM, BID (ONE TO BE TAKEN IN THE MORNING AND ONE AT NIGHT 56 TABLET)
  8. SALBUTAMOL [Concomitant]
     Active Substance: ALBUTEROL
     Dosage: 100 MICROGRAM, PRN 2 PUFFS WHEN REQUIRED)
  9. SENNA                              /00142201/ [Concomitant]
     Active Substance: SENNA LEAF
     Dosage: 7.5 MILLIGRAM, BID (TWO TO BE TAKEN AT NIGHT 56 TABLET)
  10. ASPIRIN                            /00002701/ [Concomitant]
     Active Substance: ASPIRIN
     Dosage: 75 MILLIGRAM, QD (ONE TO BE TAKEN EACH DAY)
  11. OMEPRAZOLE. [Concomitant]
     Active Substance: OMEPRAZOLE
     Dosage: 20 MILLIGRAM, BID ONE TO BE TAKEN TWICE A DAY 56 CAPSULE)

REACTIONS (1)
  - Alopecia [Unknown]
